FAERS Safety Report 10613855 (Version 2)
Quarter: 2014Q4

REPORT INFORMATION
  Report Type: Spontaneous
  Country: BR (occurrence: BR)
  Receive Date: 20141128
  Receipt Date: 20141128
  Transmission Date: 20150529
  Serious: Yes (Death, Other)
  Sender: FDA-Public Use
  Company Number: BR-PFIZER INC-2013087550

PATIENT
  Age: 74 Year
  Sex: Male

DRUGS (5)
  1. LOSARTAN [Concomitant]
     Active Substance: LOSARTAN
  2. INSULIN [Concomitant]
     Active Substance: INSULIN NOS
  3. AAS [Concomitant]
     Active Substance: ASPIRIN
  4. ROSUVASTATIN [Concomitant]
     Active Substance: ROSUVASTATIN
  5. SUTENT [Suspect]
     Active Substance: SUNITINIB MALATE
     Indication: RENAL CELL CARCINOMA
     Dosage: 50 MG, 1 TABLET IN ALTERNATE DAYS, CYCLIC (CYCLE 4X2)
     Route: 048
     Dates: start: 20120612

REACTIONS (4)
  - Urinary tract infection [Unknown]
  - Skin injury [Unknown]
  - Arrhythmia [Fatal]
  - Ageusia [Unknown]

NARRATIVE: CASE EVENT DATE: 2012
